FAERS Safety Report 20963133 (Version 2)
Quarter: 2022Q3

REPORT INFORMATION
  Report Type: Spontaneous
  Country: DE (occurrence: DE)
  Receive Date: 20220615
  Receipt Date: 20220701
  Transmission Date: 20221026
  Serious: Yes (Hospitalization)
  Sender: FDA-Public Use
  Company Number: DE-TEVA-2022-DE-2045402

PATIENT
  Age: 64 Year
  Sex: Female

DRUGS (1)
  1. QUETIAPINE [Suspect]
     Active Substance: QUETIAPINE
     Indication: Suicide attempt
     Route: 048

REACTIONS (11)
  - Somnolence [Recovered/Resolved]
  - Leukocyturia [Recovering/Resolving]
  - Mucosal ulceration [Recovering/Resolving]
  - Toxicity to various agents [Unknown]
  - Intentional overdose [Unknown]
  - Coma scale abnormal [Unknown]
  - Hypertension [Unknown]
  - Oxygen saturation decreased [Unknown]
  - Hyperventilation [Unknown]
  - Snoring [Unknown]
  - Miosis [Unknown]
